FAERS Safety Report 8269737-0 (Version None)
Quarter: 2012Q2

REPORT INFORMATION
  Report Type: 
  Country: None (occurrence: None)
  Receive Date: 20120405
  Receipt Date: 20120329
  Transmission Date: 20120825
  Serious: Yes (Hospitalization)
  Sender: FDA-Public Use
  Company Number: 2012TP000066

PATIENT
  Sex: Female

DRUGS (2)
  1. LIDODERM [Suspect]
     Indication: COMPRESSION FRACTURE
     Dosage: 3 PATCH;1X;TOP
     Route: 061
     Dates: start: 20111201
  2. MACROBID [Concomitant]

REACTIONS (6)
  - WRONG TECHNIQUE IN DRUG USAGE PROCESS [None]
  - PRODUCT ADHESION ISSUE [None]
  - VISUAL IMPAIRMENT [None]
  - LUNG DISORDER [None]
  - FLUID RETENTION [None]
  - COMPRESSION FRACTURE [None]
